FAERS Safety Report 20818403 (Version 1)
Quarter: 2022Q2

REPORT INFORMATION
  Report Type: Spontaneous
  Country: US (occurrence: None)
  Receive Date: 20220511
  Receipt Date: 20220511
  Transmission Date: 20220720
  Serious: No
  Sender: FDA-Public Use
  Company Number: None

PATIENT
  Age: 39 Year
  Sex: Female
  Weight: 65.25 kg

DRUGS (9)
  1. PAXLOVID [Suspect]
     Active Substance: NIRMATRELVIR\RITONAVIR
     Indication: COVID-19
     Dates: start: 20220502, end: 20220507
  2. PAXLOVID [Suspect]
     Active Substance: NIRMATRELVIR\RITONAVIR
     Indication: Immunodeficiency
  3. Methotrexate (injectable) [Concomitant]
     Dates: end: 20220502
  4. buspirone (dose decreased by 50% for 8 days) [Concomitant]
  5. Trazadone (dose decreased by 50% for 8 days) [Concomitant]
  6. Lorazepam (prn and used twice while on paxlovid) [Concomitant]
  7. SERTRALINE [Concomitant]
     Active Substance: SERTRALINE HYDROCHLORIDE
  8. vitamin D (50,000iu once weekly) [Concomitant]
  9. SPIRONOLACTONE [Concomitant]
     Active Substance: SPIRONOLACTONE

REACTIONS (12)
  - Dysgeusia [None]
  - Erythema of eyelid [None]
  - Eyelid oedema [None]
  - Eyelids pruritus [None]
  - Nasal disorder [None]
  - Pruritus [None]
  - Tongue pruritus [None]
  - Palatal disorder [None]
  - Conjunctivitis [None]
  - Nasal congestion [None]
  - Upper-airway cough syndrome [None]
  - Dry eye [None]

NARRATIVE: CASE EVENT DATE: 20220508
